FAERS Safety Report 7900241-2 (Version None)
Quarter: 2011Q4

REPORT INFORMATION
  Report Type: 
  Country: None (occurrence: None)
  Receive Date: 20111108
  Receipt Date: 20111028
  Transmission Date: 20120403
  Serious: Yes (Hospitalization, Other)
  Sender: FDA-Public Use
  Company Number: US-ELI_LILLY_AND_COMPANY-US201111000706

PATIENT
  Sex: Male

DRUGS (5)
  1. HUMATROPE [Suspect]
     Dosage: 1.3 DF, QD
     Dates: start: 20050201, end: 20080901
  2. HYDROCORTISONE [Concomitant]
     Dosage: UNK, UNKNOWN
  3. HUMATROPE [Suspect]
     Indication: BLOOD GROWTH HORMONE ABNORMAL
     Dosage: 1.3 DF, QD
     Dates: start: 20010101, end: 20020901
  4. SYNTHROID [Concomitant]
     Dosage: UNK, UNKNOWN
  5. HUMATROPE [Suspect]
     Dosage: 1.5 DF, QD
     Dates: start: 20100901

REACTIONS (1)
  - BRAIN NEOPLASM [None]
